FAERS Safety Report 10370375 (Version 1)
Quarter: 2014Q3

REPORT INFORMATION
  Report Type: Spontaneous
  Country: US (occurrence: None)
  Receive Date: 20140807
  Receipt Date: 20140807
  Transmission Date: 20150326
  Serious: Yes (Death, Hospitalization)
  Sender: FDA-Public Use
  Company Number: None

PATIENT
  Age: 76 Year
  Sex: Female
  Weight: 74.1 kg

DRUGS (5)
  1. TAXOL [Suspect]
     Active Substance: PACLITAXEL
  2. VITAMIN B12 [Concomitant]
     Active Substance: CYANOCOBALAMIN
  3. LISONIPRIL [Concomitant]
  4. HYDROCHLOTHIAZIDE [Concomitant]
  5. CARBOPLATIN. [Suspect]
     Active Substance: CARBOPLATIN

REACTIONS (14)
  - Renal failure acute [None]
  - Dehydration [None]
  - Respiratory failure [None]
  - Troponin increased [None]
  - Anaemia [None]
  - Bacteraemia [None]
  - Atrial fibrillation [None]
  - Haematuria [None]
  - Asthenia [None]
  - Leukocytosis [None]
  - Ventricular fibrillation [None]
  - Syncope [None]
  - Sinus tachycardia [None]
  - Lung disorder [None]

NARRATIVE: CASE EVENT DATE: 20100702
